FAERS Safety Report 24565053 (Version 1)
Quarter: 2024Q4

REPORT INFORMATION
  Report Type: Spontaneous
  Country: CN (occurrence: CN)
  Receive Date: 20241030
  Receipt Date: 20241030
  Transmission Date: 20250115
  Serious: Yes (Life-Threatening, Other)
  Sender: BRACCO
  Company Number: CN-BRACCO-2024CN06706

PATIENT
  Age: 66 Year
  Sex: Male

DRUGS (1)
  1. GADOBENATE DIMEGLUMINE [Suspect]
     Active Substance: GADOBENATE DIMEGLUMINE
     Indication: Magnetic resonance imaging
     Dosage: 15 ML, SINGLE
     Route: 042
     Dates: start: 20241018, end: 20241018

REACTIONS (8)
  - Pruritus [Recovering/Resolving]
  - Chest discomfort [Recovering/Resolving]
  - Dyspnoea [Recovering/Resolving]
  - Oxygen saturation decreased [Recovering/Resolving]
  - Heart rate increased [Recovering/Resolving]
  - Rash [Recovering/Resolving]
  - Nausea [Recovering/Resolving]
  - Blood pressure increased [Recovering/Resolving]

NARRATIVE: CASE EVENT DATE: 20241018
